FAERS Safety Report 24326778 (Version 1)
Quarter: 2024Q3

REPORT INFORMATION
  Report Type: Spontaneous
  Country: US (occurrence: None)
  Receive Date: 20240917
  Receipt Date: 20240917
  Transmission Date: 20241016
  Serious: Yes (Hospitalization)
  Sender: ASTRAZENECA
  Company Number: 2024A210446

PATIENT
  Age: 46 Year
  Sex: Female

DRUGS (1)
  1. FASENRA [Suspect]
     Active Substance: BENRALIZUMAB
     Route: 058

REACTIONS (5)
  - Dyspnoea [Unknown]
  - Disorientation [Unknown]
  - Ear pain [Unknown]
  - Ear disorder [Unknown]
  - Oropharyngeal discomfort [Unknown]
